FAERS Safety Report 24730427 (Version 2)
Quarter: 2024Q4

REPORT INFORMATION
  Report Type: Spontaneous
  Country: US (occurrence: US)
  Receive Date: 20241213
  Receipt Date: 20241218
  Transmission Date: 20250114
  Serious: Yes (Death)
  Sender: BIOGEN
  Company Number: US-BIOGEN-2024BI01293472

PATIENT
  Age: 12 Year
  Sex: Female
  Weight: 28.012 kg

DRUGS (1)
  1. SPINRAZA [Suspect]
     Active Substance: NUSINERSEN
     Indication: Spinal muscular atrophy
     Route: 050
     Dates: start: 20170523, end: 20240911

REACTIONS (1)
  - Death [Fatal]

NARRATIVE: CASE EVENT DATE: 20241209
